FAERS Safety Report 6349083-2 (Version None)
Quarter: 2009Q3

REPORT INFORMATION
  Report Type: 
  Country: None (occurrence: None)
  Receive Date: 20090911
  Receipt Date: 20090903
  Transmission Date: 20100115
  Serious: Yes (Hospitalization)
  Sender: FDA-Public Use
  Company Number: JP-JNJFOC-20090902044

PATIENT
  Age: 40 Year
  Sex: Female

DRUGS (8)
  1. RISPERDAL [Suspect]
     Indication: HYPERACUSIS
     Route: 048
  2. PEROSPIRONE HYDROCHLORIDE [Suspect]
     Indication: DRUG USE FOR UNKNOWN INDICATION
     Route: 065
  3. OLANZAPINE [Suspect]
     Indication: DRUG USE FOR UNKNOWN INDICATION
     Route: 065
  4. VALPROATE SODIUM [Concomitant]
     Route: 065
  5. BROMAZEPAM [Concomitant]
     Route: 065
  6. FLUNITRAZEPAM [Concomitant]
     Route: 065
  7. FLUVOXAMINE MALEATE [Concomitant]
     Route: 065
  8. DIAZEPAM [Concomitant]
     Dosage: AS NEEDED
     Route: 065

REACTIONS (3)
  - COGNITIVE DISORDER [None]
  - MEIGE'S SYNDROME [None]
  - OFF LABEL USE [None]
